FAERS Safety Report 5214014-5 (Version None)
Quarter: 2007Q1

REPORT INFORMATION
  Report Type: 
  Country: None (occurrence: None)
  Receive Date: 20070122
  Receipt Date: 20070112
  Transmission Date: 20070707
  Serious: Yes (Hospitalization)
  Sender: FDA-Public Use
  Company Number: FR-JNJFOC-20070103796

PATIENT
  Age: 85 Year
  Sex: Female
  Weight: 65 kg

DRUGS (5)
  1. RISPERDAL [Suspect]
     Indication: CONFUSIONAL STATE
     Route: 048
  2. EQUANIL 400 [Concomitant]
     Indication: CONFUSIONAL STATE
     Route: 065
  3. MYOLASTAN [Concomitant]
     Route: 065
  4. STABLON [Concomitant]
     Indication: DYSTHYMIC DISORDER
     Route: 065
  5. DAFALGAN [Concomitant]
     Route: 065

REACTIONS (1)
  - ARRHYTHMIA [None]
